FAERS Safety Report 6507927-5 (Version None)
Quarter: 2009Q4

REPORT INFORMATION
  Report Type: 
  Country: None (occurrence: None)
  Receive Date: 20091221
  Receipt Date: 20091211
  Transmission Date: 20100525
  Serious: Yes (Hospitalization, Other)
  Sender: FDA-Public Use
  Company Number: A0836004A

PATIENT
  Age: 47 Year
  Sex: Male

DRUGS (1)
  1. WELLBUTRIN SR [Suspect]
     Indication: DRUG USE FOR UNKNOWN INDICATION
     Dosage: 150MG PER DAY
     Route: 048

REACTIONS (5)
  - COMA [None]
  - DIZZINESS [None]
  - INTENTIONAL OVERDOSE [None]
  - OVERDOSE [None]
  - SUICIDE ATTEMPT [None]
